FAERS Safety Report 10202426 (Version 3)
Quarter: 2014Q2

REPORT INFORMATION
  Report Type: Report from Study
  Country: DE (occurrence: DE)
  Receive Date: 20140528
  Receipt Date: 20140609
  Transmission Date: 20141212
  Serious: Yes (Other)
  Sender: FDA-Public Use
  Company Number: DE-SA-2014SA013738

PATIENT
  Age: 33 Year
  Sex: Male

DRUGS (8)
  1. AUBAGIO [Suspect]
     Indication: MULTIPLE SCLEROSIS
     Route: 048
     Dates: start: 20140131
  2. EXFORGE [Concomitant]
     Indication: BLOOD PRESSURE INCREASED
     Route: 048
  3. AMITRIPTYLIN [Concomitant]
     Indication: PAIN
     Route: 048
  4. EUTHYROX [Concomitant]
     Indication: HYPOTHYROIDISM
     Route: 048
  5. BETAHISTINE (SALT NOT SPECIFIED) [Concomitant]
     Indication: DIZZINESS
     Route: 048
  6. TORASEMIDE [Concomitant]
     Indication: BLOOD PRESSURE
  7. PANTOPRAZOLE [Concomitant]
     Indication: NAUSEA
     Route: 048
  8. HYDROCHLOROTHIAZIDE [Concomitant]
     Indication: RENAL IMPAIRMENT
     Route: 048

REACTIONS (9)
  - Sudden hearing loss [Not Recovered/Not Resolved]
  - Fatigue [Unknown]
  - Blood pressure decreased [Unknown]
  - Multiple sclerosis relapse [Not Recovered/Not Resolved]
  - Vision blurred [Unknown]
  - Dizziness [Unknown]
  - Vertigo [Not Recovered/Not Resolved]
  - Nausea [Not Recovered/Not Resolved]
  - Headache [Not Recovered/Not Resolved]
